FAERS Safety Report 19350227 (Version 1)
Quarter: 2021Q2

REPORT INFORMATION
  Report Type: Spontaneous
  Country: US (occurrence: US)
  Receive Date: 20210531
  Receipt Date: 20210531
  Transmission Date: 20210717
  Serious: No
  Sender: FDA-Public Use
  Company Number: US-TEVA-2021-US-1912895

PATIENT
  Age: 55 Year
  Sex: Female

DRUGS (1)
  1. ADIPEX [Suspect]
     Active Substance: PHENTERMINE
     Indication: WEIGHT INCREASED
     Route: 065
     Dates: start: 20210403

REACTIONS (4)
  - Feeling abnormal [Unknown]
  - Product availability issue [Unknown]
  - Product formulation issue [Unknown]
  - Therapeutic product effect incomplete [Unknown]

NARRATIVE: CASE EVENT DATE: 20210403
